FAERS Safety Report 7406147-X (Version None)
Quarter: 2011Q2

REPORT INFORMATION
  Report Type: 
  Country: None (occurrence: None)
  Receive Date: 20110411
  Receipt Date: 20110317
  Transmission Date: 20111010
  Serious: No
  Sender: FDA-Public Use
  Company Number: US-AMGEN-USASP2011014267

PATIENT
  Age: 86 Year
  Sex: Male
  Weight: 65.76 kg

DRUGS (1)
  1. VECTIBIX [Suspect]
     Indication: COLON CANCER
     Dosage: 390 MG, Q2WK
     Route: 042
     Dates: start: 20110201

REACTIONS (2)
  - BLOOD URINE PRESENT [None]
  - URINARY TRACT INFECTION [None]
